FAERS Safety Report 18520528 (Version 1)
Quarter: 2020Q4

REPORT INFORMATION
  Report Type: Report from Study
  Country: US (occurrence: US)
  Receive Date: 20201118
  Receipt Date: 20201118
  Transmission Date: 20210114
  Serious: No
  Sender: FDA-Public Use
  Company Number: NVSC2020US302469

PATIENT
  Sex: Male

DRUGS (1)
  1. ENTRESTO [Suspect]
     Active Substance: SACUBITRIL\VALSARTAN
     Indication: CARDIAC FAILURE
     Dosage: 2 DF (1 TABLET OF 49/51 MG IN THE MORNING AND 24/26 MG 1 TABLET AT NIGHT)
     Route: 048

REACTIONS (1)
  - Incorrect dose administered [Unknown]
